FAERS Safety Report 15700641 (Version 3)
Quarter: 2019Q1

REPORT INFORMATION
  Report Type: Spontaneous
  Country: US (occurrence: US)
  Receive Date: 20181207
  Receipt Date: 20190129
  Transmission Date: 20190417
  Serious: No
  Sender: FDA-Public Use
  Company Number: US-SA-2018SA329990

PATIENT
  Age: 66 Year
  Sex: Female
  Weight: 71.66 kg

DRUGS (2)
  1. PRALUENT [Suspect]
     Active Substance: ALIROCUMAB
     Indication: TYPE IIA HYPERLIPIDAEMIA
  2. PRALUENT [Suspect]
     Active Substance: ALIROCUMAB
     Indication: BLOOD CHOLESTEROL
     Dosage: 75 MG, QOW
     Route: 058
     Dates: start: 201808

REACTIONS (7)
  - Injection site urticaria [Unknown]
  - Injection site reaction [Unknown]
  - Pruritus [Unknown]
  - Injection site erythema [Unknown]
  - Erythema [Unknown]
  - Injection site swelling [Unknown]
  - Injection site pruritus [Recovering/Resolving]

NARRATIVE: CASE EVENT DATE: 201809
